FAERS Safety Report 23535926 (Version 1)
Quarter: 2024Q1

REPORT INFORMATION
  Report Type: Spontaneous
  Country: JP (occurrence: JP)
  Receive Date: 20240219
  Receipt Date: 20240219
  Transmission Date: 20240409
  Serious: Yes (Death, Other)
  Sender: FDA-Public Use
  Company Number: JP-BRISTOL-MYERS SQUIBB COMPANY-2024-026134

PATIENT
  Age: 55 Year
  Sex: Male
  Weight: 62 kg

DRUGS (3)
  1. NIVOLUMAB [Suspect]
     Active Substance: NIVOLUMAB
     Indication: Non-small cell lung cancer
     Dates: start: 20210416, end: 20211216
  2. IPILIMUMAB [Suspect]
     Active Substance: IPILIMUMAB
     Indication: Non-small cell lung cancer
     Dates: start: 20210416, end: 20211216
  3. IMFINZI [Suspect]
     Active Substance: DURVALUMAB
     Indication: Non-small cell lung cancer
     Dosage: ONCE/SINGLE ADMINISTRATION
     Route: 041
     Dates: start: 20200813, end: 20200813

REACTIONS (1)
  - Death [Fatal]

NARRATIVE: CASE EVENT DATE: 20230125
